FAERS Safety Report 6760071-4 (Version None)
Quarter: 2010Q2

REPORT INFORMATION
  Report Type: 
  Country: None (occurrence: None)
  Receive Date: 20100608
  Receipt Date: 20100526
  Transmission Date: 20101027
  Serious: Yes (Hospitalization)
  Sender: FDA-Public Use
  Company Number: FR-B.I. PHARMACEUTICALS,INC./RIDGEFIELD-2010-FF-00439FF

PATIENT
  Sex: Male

DRUGS (6)
  1. SIFROL [Suspect]
     Route: 048
     Dates: end: 20090530
  2. MEMANTINE HCL [Suspect]
     Dosage: 10 MG
     Route: 048
  3. STALEVO 100 [Concomitant]
     Dosage: 150MG/37.5MG/200MG
     Route: 048
  4. LEVOTHYROXINE SODIUM [Concomitant]
     Dosage: 75 MCG
     Route: 048
  5. LAMICTAL [Concomitant]
     Dosage: 300 MG
     Route: 048
  6. RIVOTRIL [Concomitant]
     Dosage: 2 MG
     Route: 048

REACTIONS (14)
  - ABNORMAL BEHAVIOUR [None]
  - CIRCADIAN RHYTHM SLEEP DISORDER [None]
  - CONFUSIONAL STATE [None]
  - DECREASED APPETITE [None]
  - DEHYDRATION [None]
  - DISORIENTATION [None]
  - DRUG INTERACTION [None]
  - GENERAL PHYSICAL HEALTH DETERIORATION [None]
  - INAPPROPRIATE AFFECT [None]
  - INSOMNIA [None]
  - PERSECUTORY DELUSION [None]
  - REFUSAL OF TREATMENT BY PATIENT [None]
  - SPEECH DISORDER [None]
  - THINKING ABNORMAL [None]
